FAERS Safety Report 9288944 (Version 1)
Quarter: 2013Q2

REPORT INFORMATION
  Report Type: Spontaneous
  Country: US (occurrence: None)
  Receive Date: 20130509
  Receipt Date: 20130509
  Transmission Date: 20140414
  Serious: Yes (Other)
  Sender: FDA-Public Use
  Company Number: AUR-APL-2013-03846

PATIENT
  Age: 90 Year
  Sex: Female

DRUGS (1)
  1. RISPERIDONE [Suspect]
     Indication: THINKING ABNORMAL

REACTIONS (4)
  - Respiratory dyskinesia [None]
  - Dyskinesia [None]
  - Eructation [None]
  - Hiccups [None]
